FAERS Safety Report 7236916-0 (Version None)
Quarter: 2011Q1

REPORT INFORMATION
  Report Type: 
  Country: None (occurrence: None)
  Receive Date: 20110121
  Receipt Date: 20110114
  Transmission Date: 20110831
  Serious: Yes (Other)
  Sender: FDA-Public Use
  Company Number: CO-AMGEN-COLSP2011003159

PATIENT

DRUGS (2)
  1. ENBREL [Suspect]
     Indication: PSORIATIC ARTHROPATHY
     Dosage: 50 MG, 2X/WEEK
     Route: 058
     Dates: start: 20101001
  2. ENBREL [Suspect]
     Indication: PSORIASIS

REACTIONS (3)
  - TACHYCARDIA [None]
  - MALAISE [None]
  - LIVER FUNCTION TEST ABNORMAL [None]
